FAERS Safety Report 9202153 (Version 1)
Quarter: 2013Q2

REPORT INFORMATION
  Report Type: Spontaneous
  Country: GB (occurrence: GB)
  Receive Date: 20130401
  Receipt Date: 20130401
  Transmission Date: 20140414
  Serious: Yes (Hospitalization)
  Sender: FDA-Public Use
  Company Number: GB-ASTRAZENECA-2013SE19280

PATIENT
  Age: 66 Year
  Sex: Male
  Weight: 82.5 kg

DRUGS (7)
  1. BRILIQUE [Suspect]
     Indication: ACUTE MYOCARDIAL INFARCTION
     Route: 048
     Dates: start: 20130302, end: 20130312
  2. ASPIRIN [Concomitant]
  3. ATORVASTATIN [Concomitant]
  4. BISOPROLOL [Concomitant]
  5. EPLERENONE [Concomitant]
  6. GTN [Concomitant]
  7. PERINDOPRIL [Concomitant]

REACTIONS (1)
  - Bradycardia [Recovering/Resolving]
